FAERS Safety Report 13380641 (Version 1)
Quarter: 2017Q1

REPORT INFORMATION
  Report Type: Spontaneous
  Country: US (occurrence: US)
  Receive Date: 20170329
  Receipt Date: 20170329
  Transmission Date: 20170429
  Serious: Yes (Life-Threatening, Other)
  Sender: FDA-Public Use
  Company Number: US-AXELLIA-001060

PATIENT
  Age: 3 Year
  Sex: Male

DRUGS (4)
  1. CEFTRIAXONE. [Suspect]
     Active Substance: CEFTRIAXONE
     Indication: MENINGITIS MENINGOCOCCAL
  2. VANCOMYCIN [Suspect]
     Active Substance: VANCOMYCIN
     Indication: MENINGITIS MENINGOCOCCAL
  3. DOXYCYCLINE. [Suspect]
     Active Substance: DOXYCYCLINE
     Indication: MENINGITIS MENINGOCOCCAL
  4. MEROPENEM. [Suspect]
     Active Substance: MEROPENEM
     Indication: MENINGITIS MENINGOCOCCAL

REACTIONS (3)
  - Disseminated intravascular coagulation [Unknown]
  - Drug ineffective [Not Recovered/Not Resolved]
  - Cardiac arrest [Not Recovered/Not Resolved]
